FAERS Safety Report 11949391 (Version 2)
Quarter: 2016Q1

REPORT INFORMATION
  Report Type: Spontaneous
  Country: US (occurrence: US)
  Receive Date: 20160125
  Receipt Date: 20160302
  Transmission Date: 20160526
  Serious: Yes (Hospitalization, Other)
  Sender: FDA-Public Use
  Company Number: US-GLAXOSMITHKLINE-US2016GSK004987

PATIENT
  Age: 70 Year
  Sex: Male

DRUGS (6)
  1. IBUPROFEN. [Concomitant]
     Active Substance: IBUPROFEN
     Dosage: UNK
  2. HYDROCHLOROTHIAZIDE. [Concomitant]
     Active Substance: HYDROCHLOROTHIAZIDE
     Dosage: UNK
  3. VALACYCLOVIR HCL [Suspect]
     Active Substance: VALACYCLOVIR HYDROCHLORIDE
     Indication: GASTRIC DISORDER
  4. ASPIRIN. [Concomitant]
     Active Substance: ASPIRIN
     Dosage: UNK
  5. AMLODIPINE BESILATE [Concomitant]
     Active Substance: AMLODIPINE BESYLATE
     Dosage: UNK
  6. VALACYCLOVIR HCL [Suspect]
     Active Substance: VALACYCLOVIR HYDROCHLORIDE
     Indication: ORAL HERPES
     Dosage: UNK (1 GM) TAKEN TWO AT A TIME FOR A TOTAL OF FOUR IN A TWELVE HOUR PERIOD
     Dates: start: 20150312

REACTIONS (22)
  - General physical health deterioration [Unknown]
  - Device therapy [Unknown]
  - Lip swelling [Unknown]
  - Vomiting [Unknown]
  - Thrombosis [Unknown]
  - Drug intolerance [Unknown]
  - Malaise [Unknown]
  - Urinary tract infection [Recovered/Resolved]
  - Cerebrovascular accident [Unknown]
  - Abasia [Recovered/Resolved]
  - Swelling face [Unknown]
  - Confusional state [Unknown]
  - Altered state of consciousness [Unknown]
  - Defaecation urgency [Unknown]
  - Flatulence [Unknown]
  - Depressed level of consciousness [Unknown]
  - Amnesia [Recovered/Resolved]
  - Drug ineffective [Unknown]
  - Cerebral thrombosis [Unknown]
  - Feeling abnormal [Unknown]
  - Speech disorder [Unknown]
  - Asthenia [Recovered/Resolved]

NARRATIVE: CASE EVENT DATE: 201503
